FAERS Safety Report 8066999-X (Version None)
Quarter: 2012Q1

REPORT INFORMATION
  Report Type: 
  Country: None (occurrence: None)
  Receive Date: 20120124
  Receipt Date: 20120119
  Transmission Date: 20120608
  Serious: Yes (Hospitalization, Other)
  Sender: FDA-Public Use
  Company Number: US-MERCK-1110USA00597

PATIENT
  Age: 59 Year
  Sex: Female

DRUGS (2)
  1. FOSAMAX [Suspect]
     Indication: OSTEOPOROSIS
     Route: 048
     Dates: start: 20080401, end: 20100301
  2. PREDNISONE [Concomitant]
     Route: 065
     Dates: start: 20070101, end: 20110101

REACTIONS (11)
  - ANXIETY [None]
  - OSTEONECROSIS OF JAW [None]
  - EXPOSED BONE IN JAW [None]
  - HIP FRACTURE [None]
  - DEVICE FAILURE [None]
  - DYSPEPSIA [None]
  - CONSTIPATION [None]
  - WEIGHT DECREASED [None]
  - DEPRESSION [None]
  - DIARRHOEA [None]
  - CARPAL TUNNEL SYNDROME [None]
